FAERS Safety Report 8850829 (Version 1)
Quarter: 2012Q4

REPORT INFORMATION
  Report Type: 
  Country: US (occurrence: US)
  Receive Date: 20121019
  Receipt Date: 20121019
  Transmission Date: 20130627
  Serious: Yes (Hospitalization)
  Sender: FDA-Public Use
  Company Number: US-SHIRE-ALL1-2012-04884

PATIENT
  Age: 4 Year
  Sex: Male

DRUGS (3)
  1. INTUNIV [Suspect]
     Indication: ATTENTION DEFICIT/HYPERACTIVITY DISORDER
     Dosage: 1 mg, 1x/day:qd (took dose at 9pm at night)
     Route: 048
  2. INTUNIV [Suspect]
     Dosage: 2 mg, 1x/day:qd (took dose at 9pm each night)
     Route: 048
  3. INTUNIV [Suspect]
     Dosage: 1 mg, 1x/day:qd (took dose at 9pm each night)
     Route: 048

REACTIONS (7)
  - Toxicity to various agents [Recovered/Resolved]
  - Bradycardia [Recovered/Resolved]
  - Lethargy [Recovered/Resolved]
  - Hypertension [Recovered/Resolved]
  - Hypotension [Recovered/Resolved]
  - Somnolence [Recovered/Resolved]
  - Off label use [Recovered/Resolved]
